FAERS Safety Report 9969840 (Version 5)
Quarter: 2014Q2

REPORT INFORMATION
  Report Type: Spontaneous
  Country: SE (occurrence: SE)
  Receive Date: 20140306
  Receipt Date: 20140505
  Transmission Date: 20141212
  Serious: Yes (Hospitalization, Other)
  Sender: FDA-Public Use
  Company Number: SE-JNJFOC-20140218434

PATIENT
  Age: 23 Year
  Sex: Female

DRUGS (24)
  1. INVEGA [Suspect]
     Indication: PRODUCT USED FOR UNKNOWN INDICATION
     Dosage: PHARMACEUTICAL DOSAGE FORM GIVEN AS  DEPOTTABLET .
     Route: 048
  2. TOPIRAMATE [Suspect]
     Indication: PRODUCT USED FOR UNKNOWN INDICATION
     Route: 048
  3. CETIRIZINE HYDROCHLORIDE [Suspect]
     Route: 065
  4. CETIRIZINE HYDROCHLORIDE [Suspect]
     Indication: PRODUCT USED FOR UNKNOWN INDICATION
     Route: 065
  5. PROPAVAN [Suspect]
     Indication: PRODUCT USED FOR UNKNOWN INDICATION
     Dosage: PROPAVANE IS GIVEN AS PROPAVANE 25 MG TABLET.
     Route: 048
  6. SOBRIL [Suspect]
     Indication: PRODUCT USED FOR UNKNOWN INDICATION
     Route: 065
  7. ERGENYL [Suspect]
     Indication: PRODUCT USED FOR UNKNOWN INDICATION
     Route: 065
  8. NOZINAN [Suspect]
     Indication: PRODUCT USED FOR UNKNOWN INDICATION
     Route: 065
  9. PARGITAN [Suspect]
     Indication: PRODUCT USED FOR UNKNOWN INDICATION
     Dosage: IT IS GIVEN AS PARGITAN 5 MG TABLET AND HENCE  THE DOSAGE FORM WAS CAPTURED AS TABLET
     Route: 048
  10. OMEPRAZOLE [Suspect]
     Indication: PRODUCT USED FOR UNKNOWN INDICATION
     Route: 065
  11. QUETIAPINE [Suspect]
     Indication: PRODUCT USED FOR UNKNOWN INDICATION
     Dosage: QUETIAPINE TEVA WAS CAPTURED AS QUETIAPINE.
     Route: 065
  12. ATARAX [Suspect]
     Indication: PRODUCT USED FOR UNKNOWN INDICATION
     Route: 065
  13. ZYPREXA [Suspect]
     Indication: PRODUCT USED FOR UNKNOWN INDICATION
     Route: 065
  14. SEROQUEL [Suspect]
     Indication: PRODUCT USED FOR UNKNOWN INDICATION
     Route: 065
  15. LITHIONIT [Suspect]
     Indication: PRODUCT USED FOR UNKNOWN INDICATION
     Route: 065
  16. OXASCAND [Suspect]
     Indication: PRODUCT USED FOR UNKNOWN INDICATION
     Route: 065
  17. CISORDINOL [Suspect]
     Indication: PRODUCT USED FOR UNKNOWN INDICATION
     Route: 065
  18. FLUOXETINE [Suspect]
     Indication: PRODUCT USED FOR UNKNOWN INDICATION
     Route: 065
  19. HEMINEVRIN [Suspect]
     Indication: PRODUCT USED FOR UNKNOWN INDICATION
     Route: 065
  20. AKINETON [Suspect]
     Indication: PRODUCT USED FOR UNKNOWN INDICATION
     Route: 065
  21. THERALEN [Suspect]
     Indication: PRODUCT USED FOR UNKNOWN INDICATION
     Route: 065
  22. IMOVANE [Suspect]
     Indication: PRODUCT USED FOR UNKNOWN INDICATION
     Route: 065
  23. STESOLID [Suspect]
     Indication: PRODUCT USED FOR UNKNOWN INDICATION
     Route: 065
  24. OXAZEPAM [Suspect]
     Indication: PRODUCT USED FOR UNKNOWN INDICATION
     Route: 065

REACTIONS (21)
  - Genital neoplasm malignant female [Not Recovered/Not Resolved]
  - Convulsion [Unknown]
  - Ovarian germ cell cancer stage II [Unknown]
  - Dyspnoea [Unknown]
  - Dyskinesia [Unknown]
  - Tremor [Unknown]
  - Breast enlargement [Unknown]
  - Dysuria [Unknown]
  - Abdominal pain [Unknown]
  - Amenorrhoea [Not Recovered/Not Resolved]
  - Weight increased [Unknown]
  - Blood prolactin increased [Unknown]
  - Hyperhidrosis [Unknown]
  - Swelling [Unknown]
  - Muscle spasms [Unknown]
  - Fatigue [Unknown]
  - Palpitations [Unknown]
  - Agitation [Unknown]
  - Galactorrhoea [Not Recovered/Not Resolved]
  - Muscular weakness [Unknown]
  - Aggression [Unknown]
